FAERS Safety Report 23324673 (Version 1)
Quarter: 2023Q4

REPORT INFORMATION
  Report Type: Report from Study
  Country: FR (occurrence: FR)
  Receive Date: 20231221
  Receipt Date: 20231221
  Transmission Date: 20240110
  Serious: Yes (Other)
  Sender: FDA-Public Use
  Company Number: FR-ABBVIE-5548706

PATIENT
  Age: 68 Year
  Sex: Male

DRUGS (2)
  1. EPCORITAMAB [Suspect]
     Active Substance: EPCORITAMAB
     Indication: Diffuse large B-cell lymphoma
     Dosage: 48 MILLIGRAM  (STOP DATE: ??-???-2023)
     Route: 058
     Dates: start: 20230818
  2. EPCORITAMAB [Suspect]
     Active Substance: EPCORITAMAB
     Dosage: 1Q2W
     Route: 058
     Dates: start: 2023

REACTIONS (2)
  - Inflammation [Not Recovered/Not Resolved]
  - Injection site nodule [Unknown]

NARRATIVE: CASE EVENT DATE: 20230101
